FAERS Safety Report 4571849-X (Version None)
Quarter: 2005Q1

REPORT INFORMATION
  Report Type: 
  Country: None (occurrence: None)
  Receive Date: 20050207
  Receipt Date: 20050125
  Transmission Date: 20050727
  Serious: Yes (Other)
  Sender: FDA-Public Use
  Company Number: 2005003099

PATIENT
  Age: 24 Year
  Sex: Female

DRUGS (11)
  1. NICODERM [Suspect]
     Indication: SMOKING CESSATION THERAPY
     Dosage: 14MG SINGLE DOSE
     Route: 062
     Dates: start: 20050103, end: 20050104
  2. AMOXICILLIN [Concomitant]
     Indication: STREPTOCOCCAL INFECTION
     Dosage: 1800MG PER DAY
     Route: 048
  3. CITALOPRAM HYDROBROMIDE [Concomitant]
     Dates: start: 20040101
  4. ERGOCALCIFEROL [Concomitant]
     Indication: VITAMIN SUPPLEMENTATION
     Route: 048
  5. ASCORBIC ACID [Concomitant]
     Indication: VITAMIN SUPPLEMENTATION
  6. FOLIC ACID [Concomitant]
     Indication: VITAMIN SUPPLEMENTATION
  7. THIAMINE HCL [Concomitant]
     Indication: VITAMIN SUPPLEMENTATION
  8. RETINOL [Concomitant]
     Indication: VITAMIN SUPPLEMENTATION
  9. RIBOFLAVIN TAB [Concomitant]
     Indication: VITAMIN SUPPLEMENTATION
  10. NICOTINAMIDE [Concomitant]
     Indication: VITAMIN SUPPLEMENTATION
  11. PANTHENOL [Concomitant]
     Indication: VITAMIN SUPPLEMENTATION

REACTIONS (4)
  - CONVULSION [None]
  - INITIAL INSOMNIA [None]
  - INSOMNIA [None]
  - LOSS OF CONSCIOUSNESS [None]
